FAERS Safety Report 5275272-4 (Version None)
Quarter: 2007Q1

REPORT INFORMATION
  Report Type: 
  Country: None (occurrence: None)
  Receive Date: 20061213
  Receipt Date: 20051027
  Transmission Date: 20070707
  Serious: No
  Sender: FDA-Public Use
  Company Number: 2005UW12117

PATIENT
  Age: 36 Year
  Sex: Male
  Weight: 129.7287 kg

DRUGS (4)
  1. SEROQUEL [Suspect]
     Indication: BIPOLAR I DISORDER
     Dosage: 300 MG HS PO
     Route: 048
     Dates: start: 20000101
  2. EQUETRO [Suspect]
     Indication: BIPOLAR DISORDER
     Dosage: 200 MG QD PO
     Route: 048
     Dates: start: 20050804, end: 20050805
  3. EQUETRO [Suspect]
     Indication: BIPOLAR DISORDER
     Dosage: 200 MG QD PO
     Route: 048
     Dates: start: 20050808
  4. LANTUS [Concomitant]

REACTIONS (1)
  - PRIAPISM [None]
